FAERS Safety Report 15621906 (Version 1)
Quarter: 2018Q4

REPORT INFORMATION
  Report Type: Spontaneous
  Country: DK (occurrence: DK)
  Receive Date: 20181115
  Receipt Date: 20181115
  Transmission Date: 20190205
  Serious: Yes (Life-Threatening, Hospitalization)
  Sender: FDA-Public Use
  Company Number: DK-009507513-1811DNK003676

PATIENT
  Age: 75 Year
  Sex: Male
  Weight: 86 kg

DRUGS (9)
  1. LAXOBERAL [Concomitant]
     Active Substance: SODIUM PICOSULFATE
     Indication: CONSTIPATION
     Dosage: 10 DROPS AS NEEDED, NO MORE THAN ONCE DAILY
     Route: 048
     Dates: start: 201804
  2. KURACID [Concomitant]
     Indication: GASTRIC ULCER
     Dosage: 600 MILLIGRAM, QD
     Route: 048
     Dates: start: 201605
  3. CITALOPRAM [Concomitant]
     Active Substance: CITALOPRAM HYDROBROMIDE
     Indication: DEPRESSION
     Dosage: 20 MILLIGRAM, QD
     Route: 048
     Dates: start: 20150115
  4. HJERTEMAGNYL (ASPIRIN) [Concomitant]
     Indication: ISCHAEMIC HEART DISEASE PROPHYLAXIS
     Dosage: 75 MILLIGRAM, QD
     Route: 048
     Dates: start: 20130321
  5. PAMOL [Concomitant]
     Active Substance: ACETAMINOPHEN
     Indication: PAIN
     Dosage: 1000 MILLIGRAM, AS NECESSARY (PRN)
     Route: 048
     Dates: start: 201511
  6. MOVICOL [Concomitant]
     Active Substance: POLYETHYLENE GLYCOL 3350\POTASSIUM CHLORIDE\SODIUM BICARBONATE\SODIUM CHLORIDE
     Indication: CONSTIPATION
     Dosage: 1 SACHET AS NEEDED, NO MORE THAN 8 TIMES DAILY
     Route: 048
     Dates: start: 201803
  7. FURIX [Concomitant]
     Active Substance: FUROSEMIDE
     Indication: DIURETIC THERAPY
     Dosage: 20 MILLIGRAM, QD; STRAT DATE REPORTED AS UNKNOWN START DATE, AT LEAST SINCE JAN?2016
     Route: 048
     Dates: start: 201601
  8. GAVISCON (ALGINIC ACID (+) ALUMINUM HYDROXIDE (+) MAGNESIUM TRISILICAT [Concomitant]
     Active Substance: ALGINIC ACID\ALUMINUM HYDROXIDE\MAGNESIUM TRISILICATE
     Indication: GASTRIC PH DECREASED
     Dosage: 1 TABLET AS NEEDED, NO MORE THAN 3 TIMES DAILY
     Route: 048
     Dates: start: 201712
  9. KEYTRUDA [Suspect]
     Active Substance: PEMBROLIZUMAB
     Indication: NON-SMALL CELL LUNG CANCER METASTATIC
     Dosage: 1 DOSAGE FORM, Q3W
     Route: 042
     Dates: start: 20171110

REACTIONS (5)
  - Blood creatine phosphokinase increased [Unknown]
  - Chest pain [Unknown]
  - Cardiac failure [Unknown]
  - Troponin increased [Unknown]
  - Myocarditis [Not Recovered/Not Resolved]

NARRATIVE: CASE EVENT DATE: 20181014
